FAERS Safety Report 25405736 (Version 2)
Quarter: 2025Q2

REPORT INFORMATION
  Report Type: Report from Study
  Country: GE (occurrence: GE)
  Receive Date: 20250606
  Receipt Date: 20250610
  Transmission Date: 20250716
  Serious: Yes (Other)
  Sender: NOVARTIS
  Company Number: GE-002147023-NVSC2025GE090033

PATIENT
  Age: 65 Year
  Sex: Female
  Weight: 51 kg

DRUGS (1)
  1. PIQRAY [Suspect]
     Active Substance: ALPELISIB
     Indication: Breast cancer metastatic
     Dosage: 300 MG, QD
     Route: 065
     Dates: start: 20250330, end: 20250408

REACTIONS (4)
  - Pancreatitis [Not Recovered/Not Resolved]
  - Lipase increased [Unknown]
  - Renal failure [Not Recovered/Not Resolved]
  - Hypercreatininaemia [Unknown]

NARRATIVE: CASE EVENT DATE: 20250408
